FAERS Safety Report 20794922 (Version 2)
Quarter: 2022Q3

REPORT INFORMATION
  Report Type: Other
  Country: IT (occurrence: IT)
  Receive Date: 20220506
  Receipt Date: 20220916
  Transmission Date: 20221027
  Serious: Yes (Other)
  Sender: FDA-Public Use
  Company Number: IT-ROCHE-3088479

PATIENT
  Age: 73 Year
  Sex: Male

DRUGS (12)
  1. RITUXIMAB [Suspect]
     Active Substance: RITUXIMAB
     Indication: Hairy cell leukaemia
     Route: 042
  2. VEMURAFENIB [Suspect]
     Active Substance: VEMURAFENIB
     Indication: Hairy cell leukaemia
     Route: 048
  3. PEGINTERFERON ALFA-2A [Suspect]
     Active Substance: PEGINTERFERON ALFA-2A
     Indication: Hairy cell leukaemia
     Route: 065
  4. METHYLPREDNISOLONE [Concomitant]
     Active Substance: METHYLPREDNISOLONE
     Dosage: 20 MG IV/PO QD
  5. PREDNISONE [Concomitant]
     Active Substance: PREDNISONE
     Dosage: 20 MG IV/PO QD
  6. AMIKACIN [Concomitant]
     Active Substance: AMIKACIN
  7. CLOFAZIMINE [Concomitant]
     Active Substance: CLOFAZIMINE
  8. TIGECYCLINE [Concomitant]
     Active Substance: TIGECYCLINE
  9. AZITHROMYCIN [Concomitant]
     Active Substance: AZITHROMYCIN
  10. IMIPENEM [Concomitant]
     Active Substance: IMIPENEM
  11. MOXIFLOXACIN [Concomitant]
     Active Substance: MOXIFLOXACIN
  12. LINEZOLID [Concomitant]
     Active Substance: LINEZOLID

REACTIONS (4)
  - Skin reaction [Unknown]
  - Electrocardiogram QT prolonged [Unknown]
  - Off label use [Unknown]
  - Infusion related reaction [Unknown]
